FAERS Safety Report 12343751 (Version 1)
Quarter: 2016Q2

REPORT INFORMATION
  Report Type: Spontaneous
  Country: US (occurrence: US)
  Receive Date: 20160507
  Receipt Date: 20160507
  Transmission Date: 20160815
  Serious: Yes (Other)
  Sender: FDA-Public Use
  Company Number: US-ACCORD-031550

PATIENT

DRUGS (1)
  1. QUETIAPINE. [Suspect]
     Active Substance: QUETIAPINE
     Indication: PRODUCT USED FOR UNKNOWN INDICATION

REACTIONS (6)
  - Confusional state [Not Recovered/Not Resolved]
  - Dizziness [Not Recovered/Not Resolved]
  - Influenza like illness [Not Recovered/Not Resolved]
  - Muscle twitching [Not Recovered/Not Resolved]
  - Tremor [Not Recovered/Not Resolved]
  - Product substitution issue [Unknown]
